FAERS Safety Report 15623512 (Version 13)
Quarter: 2020Q1

REPORT INFORMATION
  Report Type: Report from Study
  Country: US (occurrence: US)
  Receive Date: 20181115
  Receipt Date: 20200130
  Transmission Date: 20200409
  Serious: Yes (Hospitalization)
  Sender: FDA-Public Use
  Company Number: US-ACTELION-A-NJ2017-153845

PATIENT
  Age: 42 Year
  Sex: Female
  Weight: 120.64 kg

DRUGS (20)
  1. XELJANZ [Suspect]
     Active Substance: TOFACITINIB CITRATE
     Indication: PSORIATIC ARTHROPATHY
     Dosage: 11 MG, QD
     Route: 065
     Dates: start: 20180319
  2. PRILOSEC [Concomitant]
     Active Substance: OMEPRAZOLE MAGNESIUM
  3. MIDODRINE [Concomitant]
     Active Substance: MIDODRINE
  4. DULERA [Concomitant]
     Active Substance: FORMOTEROL FUMARATE DIHYDRATE\MOMETASONE FUROATE
  5. UPTRAVI [Suspect]
     Active Substance: SELEXIPAG
     Indication: PULMONARY ARTERIAL HYPERTENSION
     Dosage: 1600 MCG, BID
     Route: 048
     Dates: start: 20161214
  6. BUMETANIDE. [Concomitant]
     Active Substance: BUMETANIDE
  7. OPSUMIT [Suspect]
     Active Substance: MACITENTAN
     Indication: PULMONARY ARTERIAL HYPERTENSION
     Dosage: 10 MG, QD
     Route: 048
     Dates: start: 20170429
  8. POTASSIUM CHLORIDE. [Concomitant]
     Active Substance: POTASSIUM CHLORIDE
  9. MONTELUKAST [Concomitant]
     Active Substance: MONTELUKAST SODIUM
  10. ONDASETRON [Concomitant]
     Active Substance: ONDANSETRON
  11. LOTEMAX [Concomitant]
     Active Substance: LOTEPREDNOL ETABONATE
  12. SILDENAFIL. [Suspect]
     Active Substance: SILDENAFIL
     Indication: PRODUCT USED FOR UNKNOWN INDICATION
     Route: 065
  13. ADEMPAS [Suspect]
     Active Substance: RIOCIGUAT
     Indication: PRODUCT USED FOR UNKNOWN INDICATION
     Dosage: UNK
     Route: 065
  14. LEFLUNOMIDE. [Concomitant]
     Active Substance: LEFLUNOMIDE
  15. HYDROXYCHLOROQUINE [Concomitant]
     Active Substance: HYDROXYCHLOROQUINE
  16. LEVOCETIRIZINE [Concomitant]
     Active Substance: LEVOCETIRIZINE
  17. DOXYCYCLINE. [Concomitant]
     Active Substance: DOXYCYCLINE
  18. ESOMEPRAZOLE. [Concomitant]
     Active Substance: ESOMEPRAZOLE MAGNESIUM
  19. ELIQUIS [Concomitant]
     Active Substance: APIXABAN
  20. PREDNISONE. [Concomitant]
     Active Substance: PREDNISONE

REACTIONS (36)
  - Bronchitis viral [Recovered/Resolved]
  - Acute sinusitis [Unknown]
  - Vomiting [Recovered/Resolved]
  - Nausea [Recovered/Resolved]
  - Chronic left ventricular failure [Recovered/Resolved]
  - Catheterisation cardiac [Unknown]
  - Cardiac failure acute [Recovered/Resolved]
  - Chest discomfort [Unknown]
  - Headache [Unknown]
  - Impaired quality of life [Not Recovered/Not Resolved]
  - Upper respiratory tract infection [Recovered/Resolved]
  - Dehydration [Recovered/Resolved]
  - Abdominal distension [Recovered/Resolved]
  - Cellulitis [Not Recovered/Not Resolved]
  - Epistaxis [Unknown]
  - Back pain [Unknown]
  - Weight increased [Unknown]
  - Haemoglobin decreased [Not Recovered/Not Resolved]
  - Dyspnoea [Recovered/Resolved]
  - Dyspnoea exertional [Recovered/Resolved]
  - Oedema peripheral [Recovered/Resolved]
  - Menorrhagia [Not Recovered/Not Resolved]
  - Arthritis [Recovered/Resolved]
  - Stress [Recovering/Resolving]
  - Fluid overload [Unknown]
  - Iron deficiency anaemia [Not Recovered/Not Resolved]
  - Pain [Not Recovered/Not Resolved]
  - Product dose omission [Not Recovered/Not Resolved]
  - Pain in extremity [Unknown]
  - Condition aggravated [Recovered/Resolved]
  - Female reproductive tract disorder [Unknown]
  - Haematocrit decreased [Not Recovered/Not Resolved]
  - Malaise [Recovering/Resolving]
  - Dialysis [Unknown]
  - Dysphagia [Unknown]
  - Sleep apnoea syndrome [Unknown]

NARRATIVE: CASE EVENT DATE: 20170502
